FAERS Safety Report 7393718-2 (Version None)
Quarter: 2011Q2

REPORT INFORMATION
  Report Type: 
  Country: None (occurrence: None)
  Receive Date: 20110405
  Receipt Date: 20110323
  Transmission Date: 20111010
  Serious: Yes (Hospitalization, Disabling)
  Sender: FDA-Public Use
  Company Number: US-JNJFOC-20110201742

PATIENT
  Sex: Male
  Weight: 117.94 kg

DRUGS (4)
  1. METFORMIN [Concomitant]
     Indication: DIABETES MELLITUS
     Route: 065
  2. COZAAR [Concomitant]
     Indication: HYPERTENSION
     Route: 065
  3. TRICOR [Concomitant]
     Indication: BLOOD CHOLESTEROL INCREASED
     Route: 065
  4. ARESTIN [Suspect]
     Indication: PERIODONTAL DISEASE
     Route: 048

REACTIONS (2)
  - ARTHRALGIA [None]
  - RASH GENERALISED [None]
